FAERS Safety Report 15203702 (Version 1)
Quarter: 2018Q4

REPORT INFORMATION
  Report Type: Spontaneous
  Country: IL (occurrence: IL)
  Receive Date: 20180726
  Receipt Date: 20180726
  Transmission Date: 20190204
  Serious: Yes (Other)
  Sender: FDA-Public Use
  Company Number: IL-APOTEX-2018AP017680

PATIENT

DRUGS (5)
  1. PAXXET [Suspect]
     Active Substance: PAROXETINE HYDROCHLORIDE
     Indication: PRODUCT USED FOR UNKNOWN INDICATION
     Dosage: 60 MG, QD
     Route: 048
  2. PAROXETINE HYDROCHLORIDE. [Suspect]
     Active Substance: PAROXETINE HYDROCHLORIDE
     Dosage: UNK
     Route: 048
     Dates: start: 2003
  3. LORIVAN [Concomitant]
     Indication: PRODUCT USED FOR UNKNOWN INDICATION
     Dosage: UNK
  4. PRIZMA /00724402/ [Suspect]
     Active Substance: FLUOXETINE HYDROCHLORIDE
     Indication: PRODUCT USED FOR UNKNOWN INDICATION
     Dosage: UNK
  5. RISPERDAL [Suspect]
     Active Substance: RISPERIDONE
     Indication: PRODUCT USED FOR UNKNOWN INDICATION
     Dosage: 1 MG, QD
     Route: 048
     Dates: start: 2003

REACTIONS (23)
  - Brain injury [Unknown]
  - Psychotic disorder [Not Recovered/Not Resolved]
  - Visual impairment [Unknown]
  - Varicose vein [Unknown]
  - Memory impairment [Unknown]
  - Amnesia [Recovering/Resolving]
  - Sleep disorder [Unknown]
  - Obsessive-compulsive disorder [Not Recovered/Not Resolved]
  - Condition aggravated [Not Recovered/Not Resolved]
  - Asthenia [Unknown]
  - Pain [Unknown]
  - Schizophrenia [Not Recovered/Not Resolved]
  - Social avoidant behaviour [Unknown]
  - Somnambulism [Recovered/Resolved]
  - Headache [Unknown]
  - Hypoacusis [Unknown]
  - Loss of personal independence in daily activities [Not Recovered/Not Resolved]
  - Appetite disorder [Unknown]
  - Aggression [Unknown]
  - Mental disability [Unknown]
  - Thinking abnormal [Unknown]
  - Hypnopompic hallucination [Unknown]
  - Gait inability [Unknown]

NARRATIVE: CASE EVENT DATE: 2003
